FAERS Safety Report 4300178-4 (Version None)
Quarter: 2004Q1

REPORT INFORMATION
  Report Type: 
  Country: None (occurrence: None)
  Receive Date: 20040218
  Receipt Date: 20040210
  Transmission Date: 20041129
  Serious: Yes (Other)
  Sender: FDA-Public Use
  Company Number: 2004-01-0952

PATIENT
  Age: 15 Year
  Sex: Female

DRUGS (14)
  1. TEMODAL [Suspect]
     Indication: GASTROINTESTINAL CARCINOMA
     Dosage: 125 MG QD X5D ORAL; 250 MG QD X5D ORAL; 250 MG QD X5D ORAL
     Route: 048
     Dates: start: 20031209, end: 20031213
  2. TEMODAL [Suspect]
     Indication: PERITONEAL CARCINOMA
     Dosage: 125 MG QD X5D ORAL; 250 MG QD X5D ORAL; 250 MG QD X5D ORAL
     Route: 048
     Dates: start: 20031209, end: 20031213
  3. TEMODAL [Suspect]
     Indication: GASTROINTESTINAL CARCINOMA
     Dosage: 125 MG QD X5D ORAL; 250 MG QD X5D ORAL; 250 MG QD X5D ORAL
     Route: 048
     Dates: start: 20040105, end: 20040109
  4. TEMODAL [Suspect]
     Indication: PERITONEAL CARCINOMA
     Dosage: 125 MG QD X5D ORAL; 250 MG QD X5D ORAL; 250 MG QD X5D ORAL
     Route: 048
     Dates: start: 20040105, end: 20040109
  5. TEMODAL [Suspect]
     Indication: GASTROINTESTINAL CARCINOMA
     Dosage: 125 MG QD X5D ORAL; 250 MG QD X5D ORAL; 250 MG QD X5D ORAL
     Route: 048
     Dates: start: 20031209
  6. TEMODAL [Suspect]
     Indication: PERITONEAL CARCINOMA
     Dosage: 125 MG QD X5D ORAL; 250 MG QD X5D ORAL; 250 MG QD X5D ORAL
     Route: 048
     Dates: start: 20031209
  7. TEMODAL [Suspect]
     Indication: GASTROINTESTINAL CARCINOMA
     Dosage: 125 MG QD X5D ORAL; 250 MG QD X5D ORAL; 250 MG QD X5D ORAL
     Route: 048
     Dates: start: 20040202
  8. TEMODAL [Suspect]
     Indication: PERITONEAL CARCINOMA
     Dosage: 125 MG QD X5D ORAL; 250 MG QD X5D ORAL; 250 MG QD X5D ORAL
     Route: 048
     Dates: start: 20040202
  9. LASILIX [Concomitant]
  10. ORACILLINE [Concomitant]
  11. RIVOTRIL [Concomitant]
  12. OMEPRAZOLE [Concomitant]
  13. SECTRAL [Concomitant]
  14. LOXEN [Concomitant]

REACTIONS (17)
  - ABDOMINAL HAEMATOMA [None]
  - ANAEMIA [None]
  - ARTHRALGIA [None]
  - ASCITES [None]
  - HAEMORRHAGE [None]
  - LYMPHADENOPATHY [None]
  - MALIGNANT NEOPLASM PROGRESSION [None]
  - MENSTRUATION IRREGULAR [None]
  - MYALGIA [None]
  - NAUSEA [None]
  - NECROSIS [None]
  - NODULE [None]
  - PAIN [None]
  - PALPITATIONS [None]
  - PLATELET COUNT INCREASED [None]
  - SPLEEN DISORDER [None]
  - WHITE BLOOD CELL COUNT INCREASED [None]
